FAERS Safety Report 5062008-5 (Version None)
Quarter: 2006Q3

REPORT INFORMATION
  Report Type: 
  Country: None (occurrence: None)
  Receive Date: 20060703
  Receipt Date: 20051013
  Transmission Date: 20061208
  Serious: Yes (Life-Threatening)
  Sender: FDA-Public Use
  Company Number: 2005S1010340

PATIENT
  Age: 51 Year
  Sex: Female

DRUGS (11)
  1. CLOZAPINE [Suspect]
     Indication: BIPOLAR I DISORDER
     Dosage: 400 MG; HS; PO
     Route: 048
     Dates: start: 20041108, end: 20051005
  2. CLOZAPINE [Suspect]
     Indication: SCHIZOAFFECTIVE DISORDER
     Dosage: 400 MG; HS; PO
     Route: 048
     Dates: start: 20041108, end: 20051005
  3. CLOZAPINE [Suspect]
     Indication: SCHIZOPHRENIA
     Dosage: 400 MG; HS; PO
     Route: 048
     Dates: start: 20041108, end: 20051005
  4. BENZTROPINE MESYLATE [Concomitant]
  5. TERBINAFINE HCL [Concomitant]
  6. METOPROLOL TARTRATE [Concomitant]
  7. CLONAZEPAM [Concomitant]
  8. TOCOPHEROL CONCENTRATE CAP [Concomitant]
  9. LISINOPRIL [Concomitant]
  10. FENOFIBRATE [Concomitant]
  11. OXYBUTYNIN HYDROCHLORIDE [Concomitant]

REACTIONS (2)
  - AGRANULOCYTOSIS [None]
  - GRANULOCYTOPENIA [None]
